FAERS Safety Report 14536146 (Version 4)
Quarter: 2018Q2

REPORT INFORMATION
  Report Type: Spontaneous
  Country: SI (occurrence: SI)
  Receive Date: 20180215
  Receipt Date: 20180426
  Transmission Date: 20180711
  Serious: Yes (Death, Other)
  Sender: FDA-Public Use
  Company Number: SI-PFIZER INC-2017357982

PATIENT
  Age: 64 Year
  Sex: Male

DRUGS (14)
  1. SINTROM [Concomitant]
     Active Substance: ACENOCOUMAROL
     Indication: ATRIAL FIBRILLATION
     Dosage: 4 MG, ACCORDING TO THE SCHEME
     Route: 048
  2. AMLESSA [Concomitant]
     Active Substance: AMLODIPINE BESYLATE\PERINDOPRIL ERBUMINE
     Indication: HYPERTENSION
     Dosage: 1 DF (AMLODIPINE BESILATE 4MG/PERINDOPRIL ERBUMINE 5MG), TWICE DAILY
     Route: 048
  3. LEKADOL [Concomitant]
     Active Substance: ACETAMINOPHEN
     Indication: BACK PAIN
     Dosage: 1000 MG, 3X/DAY
     Route: 048
     Dates: start: 20170723, end: 20170803
  4. LANITOP [Concomitant]
     Active Substance: METILDIGOXIN
     Indication: ATRIAL FIBRILLATION
     Dosage: 0.1 MG, 1X/DAY
     Route: 048
  5. NEODOLPASSE [Concomitant]
     Indication: BACK PAIN
     Dosage: [DICLOFENAC SODIUM 75MG]/[ORPHENADRINE CITRATE 30MG], AS NEEDED
     Route: 030
     Dates: start: 20170723, end: 20170803
  6. ULTOP /00661201/ [Concomitant]
     Dosage: 20 MG, ONCE DAILY
     Route: 048
  7. CORYOL /00984501/ [Concomitant]
     Active Substance: CARVEDILOL
     Indication: ATRIAL FIBRILLATION
     Dosage: 25 MG, 2X/DAY
     Route: 048
  8. AMOKSIKLAV /00852501/ [Concomitant]
     Indication: INFECTION
     Dosage: 1 DF (AMOXICILLIN 875MG/CLAVULANIC ACID 125MG), TWICE DAILY
     Route: 048
     Dates: start: 20170723, end: 20170729
  9. ANALGIN /06276703/ [Concomitant]
     Indication: BACK PAIN
     Dosage: 500 MG, TWICE DAILY
     Route: 048
     Dates: start: 20170723, end: 20170803
  10. LYRICA [Suspect]
     Active Substance: PREGABALIN
     Indication: NEURALGIA
     Dosage: 25 MG, 2X/DAY
     Route: 048
     Dates: start: 20170727, end: 20170730
  11. CRESTOR [Concomitant]
     Active Substance: ROSUVASTATIN CALCIUM
     Indication: HYPERLIPIDAEMIA
     Dosage: 10 MG, ONCE DAILY IN THE EVENINGS
     Route: 048
  12. SEVREDOL [Suspect]
     Active Substance: MORPHINE
     Indication: BACK PAIN
     Dosage: 10 MG, 2X/DAY
     Route: 048
     Dates: start: 20170724, end: 20170730
  13. LASIX [Concomitant]
     Active Substance: FUROSEMIDE
     Dosage: 40 MG, ONCE DAILY
     Route: 048
  14. FRAXIPARINE [Concomitant]
     Active Substance: NADROPARIN CALCIUM
     Indication: ATRIAL FIBRILLATION
     Dosage: 1 DF (9500 IU/ML), TWICE DAILY
     Route: 058
     Dates: start: 20170730, end: 20170802

REACTIONS (4)
  - Paranoia [Recovered/Resolved]
  - Disorientation [Recovered/Resolved]
  - Hallucination, visual [Recovered/Resolved]
  - Arrhythmia [Fatal]

NARRATIVE: CASE EVENT DATE: 20170729
